FAERS Safety Report 6291312-8 (Version None)
Quarter: 2009Q3

REPORT INFORMATION
  Report Type: 
  Country: None (occurrence: None)
  Receive Date: 20090730
  Receipt Date: 20090723
  Transmission Date: 20100115
  Serious: Yes (Life-Threatening, Hospitalization, Disabling, Other)
  Sender: FDA-Public Use
  Company Number: JP-MERCK-0907USA00452

PATIENT
  Age: 93 Year
  Sex: Female
  Weight: 36 kg

DRUGS (4)
  1. HYZAAR [Suspect]
     Indication: HYPERTENSION
     Route: 048
     Dates: start: 20081201, end: 20090625
  2. HYZAAR [Suspect]
     Route: 048
     Dates: start: 20090627, end: 20090630
  3. WYPAX [Concomitant]
     Route: 048
     Dates: start: 20090627
  4. CALSLOT [Concomitant]
     Indication: HYPERTENSION
     Route: 048
     Dates: start: 20090627

REACTIONS (2)
  - HYPONATRAEMIA [None]
  - TONIC CONVULSION [None]
